FAERS Safety Report 7085513-9 (Version None)
Quarter: 2010Q4

REPORT INFORMATION
  Report Type: 
  Country: None (occurrence: None)
  Receive Date: 20101105
  Receipt Date: 20101101
  Transmission Date: 20110411
  Serious: Yes (Death)
  Sender: FDA-Public Use
  Company Number: US-ASTRAZENECA-2010SE51817

PATIENT
  Age: 45 Year
  Sex: Male

DRUGS (1)
  1. SEROQUEL [Suspect]
     Route: 048

REACTIONS (3)
  - ALCOHOL ABUSE [None]
  - DEATH [None]
  - OVERWEIGHT [None]
